FAERS Safety Report 12339513 (Version 1)
Quarter: 2016Q2

REPORT INFORMATION
  Report Type: Report from Study
  Country: US (occurrence: US)
  Receive Date: 20160505
  Receipt Date: 20160505
  Transmission Date: 20160815
  Serious: No
  Sender: FDA-Public Use
  Company Number: US-AMGEN-USASL2015138414

PATIENT
  Age: 80 Year
  Sex: Female
  Weight: 69 kg

DRUGS (3)
  1. HEPARIN SODIUM. [Concomitant]
     Active Substance: HEPARIN SODIUM
     Dosage: 1000 UNIT, UNK
  2. DOXERCALCIFEROL. [Concomitant]
     Active Substance: DOXERCALCIFEROL
     Dosage: 2 MUG, UNK
  3. ARANESP [Suspect]
     Active Substance: DARBEPOETIN ALFA
     Indication: PRODUCT USED FOR UNKNOWN INDICATION
     Dosage: UNK
     Route: 065
     Dates: start: 20150515, end: 20150520

REACTIONS (2)
  - Fatigue [Unknown]
  - Palpitations [Unknown]

NARRATIVE: CASE EVENT DATE: 20150515
